FAERS Safety Report 10216530 (Version 2)
Quarter: 2014Q3

REPORT INFORMATION
  Report Type: Spontaneous
  Country: SE (occurrence: SE)
  Receive Date: 20140604
  Receipt Date: 20140822
  Transmission Date: 20150326
  Serious: Yes (Hospitalization)
  Sender: FDA-Public Use
  Company Number: SE-JNJFOC-20140518312

PATIENT
  Age: 64 Year
  Sex: Female

DRUGS (11)
  1. SIMPONI [Suspect]
     Active Substance: GOLIMUMAB
     Indication: RHEUMATOID ARTHRITIS
     Route: 058
     Dates: start: 20101004, end: 20140509
  2. LOSARTAN [Concomitant]
     Active Substance: LOSARTAN
     Route: 065
     Dates: start: 20101021
  3. FOLACIN [Concomitant]
     Active Substance: FOLIC ACID
     Route: 065
     Dates: start: 20080618
  4. BRUFEN RETARD [Concomitant]
     Active Substance: IBUPROFEN
     Route: 065
     Dates: start: 20140416
  5. OMEPRAZOLE. [Concomitant]
     Active Substance: OMEPRAZOLE
     Route: 065
     Dates: start: 20140417, end: 20140515
  6. SOBRIL [Concomitant]
     Active Substance: OXAZEPAM
     Route: 065
     Dates: start: 20130116
  7. OVESTERIN [Concomitant]
     Active Substance: ESTRIOL
     Route: 065
     Dates: start: 20111206
  8. METHOTREXATE [Concomitant]
     Active Substance: METHOTREXATE
     Route: 065
     Dates: start: 20080618
  9. BRUFEN RETARD [Concomitant]
     Active Substance: IBUPROFEN
     Route: 065
     Dates: start: 20080701, end: 20111206
  10. OMEPRAZOLE. [Concomitant]
     Active Substance: OMEPRAZOLE
     Route: 065
     Dates: start: 20080618, end: 20080701
  11. ALVEDON [Concomitant]
     Active Substance: ACETAMINOPHEN
     Route: 065
     Dates: start: 20140417, end: 20140515

REACTIONS (4)
  - Pyrexia [Recovering/Resolving]
  - Chest pain [Recovering/Resolving]
  - Dyspnoea [Recovering/Resolving]
  - C-reactive protein increased [Recovering/Resolving]

NARRATIVE: CASE EVENT DATE: 2014
